FAERS Safety Report 6120738-8 (Version None)
Quarter: 2009Q1

REPORT INFORMATION
  Report Type: 
  Country: None (occurrence: None)
  Receive Date: 20090317
  Receipt Date: 20090311
  Transmission Date: 20090719
  Serious: Yes (Hospitalization)
  Sender: FDA-Public Use
  Company Number: US-ELI_LILLY_AND_COMPANY-US200812005088

PATIENT
  Sex: Female
  Weight: 77.098 kg

DRUGS (18)
  1. BYETTA [Suspect]
     Indication: TYPE 2 DIABETES MELLITUS
     Dosage: 5 UG, 2/D
     Route: 058
     Dates: start: 20050101, end: 20060101
  2. BYETTA [Suspect]
     Dosage: 10 UG, 2/D
     Route: 058
     Dates: start: 20060101
  3. NORVASC [Concomitant]
     Indication: BLOOD PRESSURE
     Dosage: 10 MG, DAILY (1/D)
     Route: 048
  4. DIOVAN [Concomitant]
     Indication: BLOOD PRESSURE
     Dosage: 160 MG, DAILY (1/D)
     Route: 048
  5. FUROSEMIDE [Concomitant]
     Indication: BLOOD PRESSURE
     Dosage: 40 MG, DAILY (1/D)
     Route: 048
  6. KLOR-CON [Concomitant]
     Dosage: 10 MEQ, DAILY (1/D)
     Route: 048
  7. ACTOS [Concomitant]
     Indication: TYPE 2 DIABETES MELLITUS
     Dosage: 30 MG, DAILY (1/D)
     Route: 048
  8. SYNTHROID [Concomitant]
     Indication: THYROIDECTOMY
     Dosage: 100 UG, DAILY (1/D)
     Route: 048
  9. ADVAIR HFA [Concomitant]
     Indication: DYSPNOEA
     Dosage: UNK, 2/D
  10. SPIRIVA [Concomitant]
     Indication: DYSPNOEA
     Dosage: UNK, UNKNOWN
  11. FLUTICASONE PROPIONATE [Concomitant]
     Indication: HYPERSENSITIVITY
     Dosage: UNK, DAILY (1/D)
     Route: 045
  12. ALLEGRA [Concomitant]
     Indication: HYPERSENSITIVITY
     Dosage: 180 MG, DAILY (1/D)
     Route: 048
  13. PROZAC [Concomitant]
     Indication: DEPRESSION
     Dosage: 20 MG, DAILY (1/D)
     Route: 048
  14. ASPIRIN [Concomitant]
     Dosage: 81 MG, DAILY (1/D)
     Route: 048
  15. LOVAZA [Concomitant]
     Dosage: UNK, UNKNOWN
  16. MULTI-VITAMIN [Concomitant]
     Dosage: UNK, UNKNOWN
  17. C-PAP [Concomitant]
     Indication: SLEEP APNOEA SYNDROME
     Dosage: UNK, UNKNOWN
  18. CHOLESTEROL- AND TRIGLYCERIDE REDUCERS [Concomitant]
     Dosage: UNK, UNKNOWN
     Dates: end: 20080101

REACTIONS (6)
  - BLOOD GLUCOSE INCREASED [None]
  - CERVICOBRACHIAL SYNDROME [None]
  - DYSPNOEA [None]
  - INFLAMMATION [None]
  - LUMBAR RADICULOPATHY [None]
  - MENINGIOMA [None]
